FAERS Safety Report 4338626-6 (Version None)
Quarter: 2004Q2

REPORT INFORMATION
  Report Type: 
  Country: None (occurrence: None)
  Receive Date: 20040409
  Receipt Date: 20040330
  Transmission Date: 20050107
  Serious: Yes (Other)
  Sender: FDA-Public Use
  Company Number: K200400470

PATIENT
  Age: 48 Year
  Sex: Male
  Weight: 80.7 kg

DRUGS (7)
  1. LEVOXYL [Suspect]
     Indication: HYPOTHYROIDISM
     Dosage: 25 MCG, QD, ORAL
     Route: 048
     Dates: start: 20010101
  2. CENTRUM (VITAMIN NOS, MINERAL NOS) [Concomitant]
  3. ASPIRIN [Concomitant]
  4. ZINC (ZINC) [Concomitant]
  5. VIOXX [Concomitant]
  6. VITAMIN B6 [Concomitant]
  7. PREDNISONE [Concomitant]

REACTIONS (1)
  - DEAFNESS [None]
